FAERS Safety Report 25847404 (Version 1)
Quarter: 2025Q3

REPORT INFORMATION
  Report Type: Spontaneous
  Country: GB (occurrence: GB)
  Receive Date: 20250925
  Receipt Date: 20250925
  Transmission Date: 20251020
  Serious: Yes (Other)
  Sender: ELI LILLY AND COMPANY
  Company Number: GB-MHRA-EMIS-1916-2852c834-a6e8-417e-8448-1ae51665ccca

PATIENT
  Age: 62 Year
  Sex: Female
  Weight: 67 kg

DRUGS (3)
  1. MOUNJARO [Suspect]
     Active Substance: TIRZEPATIDE
     Indication: Product used for unknown indication
     Dosage: 2.5 MG, WEEKLY (1/W)
     Route: 058
     Dates: start: 20250531
  2. WEGOVY [Concomitant]
     Active Substance: SEMAGLUTIDE
     Indication: Obesity
     Dates: start: 20250622, end: 20250804
  3. COCODAMOL [Concomitant]
     Active Substance: ACETAMINOPHEN\CODEINE PHOSPHATE
     Indication: Product used for unknown indication
     Dates: start: 20250713, end: 20250825

REACTIONS (2)
  - Patella fracture [Recovering/Resolving]
  - Fall [Recovering/Resolving]

NARRATIVE: CASE EVENT DATE: 20250713
